FAERS Safety Report 4597400-6 (Version None)
Quarter: 2005Q1

REPORT INFORMATION
  Report Type: 
  Country: None (occurrence: None)
  Receive Date: 20050228
  Receipt Date: 20050228
  Transmission Date: 20050727
  Serious: Yes (Other)
  Sender: FDA-Public Use
  Company Number: None

PATIENT
  Sex: Female
  Weight: 47.6277 kg

DRUGS (3)
  1. GABAPENTIN [Suspect]
     Indication: DYSPNOEA
     Dosage: 9 QD PO
     Route: 048
  2. GABAPENTIN [Suspect]
     Indication: EYE IRRITATION
     Dosage: 9 QD PO
     Route: 048
  3. GABAPENTIN [Suspect]
     Indication: OROPHARYNGEAL SWELLING
     Dosage: 9 QD PO
     Route: 048

REACTIONS (1)
  - EYE IRRITATION [None]
